FAERS Safety Report 18809044 (Version 1)
Quarter: 2021Q1

REPORT INFORMATION
  Report Type: Spontaneous
  Country: IN (occurrence: IN)
  Receive Date: 20210129
  Receipt Date: 20210129
  Transmission Date: 20210419
  Serious: Yes (Other)
  Sender: FDA-Public Use
  Company Number: IN-LUPIN PHARMACEUTICALS INC.-2021-01011

PATIENT
  Age: 32 Year
  Sex: Female

DRUGS (6)
  1. TRAMADOL HYDROCHLORIDE. [Suspect]
     Active Substance: TRAMADOL HYDROCHLORIDE
     Indication: ANXIETY
     Dosage: 100 MILLIGRAM, FOR FEW DAYS
     Route: 042
  2. TRAMADOL HYDROCHLORIDE. [Suspect]
     Active Substance: TRAMADOL HYDROCHLORIDE
     Dosage: 100 MILLIGRAM, ONE NIGHT, SHE TRIED TO INJECT HERSELF
     Route: 042
  3. TRAMADOL HYDROCHLORIDE. [Suspect]
     Active Substance: TRAMADOL HYDROCHLORIDE
     Indication: ABDOMINAL PAIN UPPER
     Dosage: 2 MILLILITER
     Route: 042
  4. TRAMADOL HYDROCHLORIDE. [Suspect]
     Active Substance: TRAMADOL HYDROCHLORIDE
     Dosage: 400 MILLIGRAM, QD
     Route: 065
  5. TRAMADOL HYDROCHLORIDE. [Suspect]
     Active Substance: TRAMADOL HYDROCHLORIDE
     Dosage: 200 MILLIGRAM, QD (REDUCED)
     Route: 065
  6. TRAMADOL HYDROCHLORIDE. [Suspect]
     Active Substance: TRAMADOL HYDROCHLORIDE
     Dosage: 2100 MILLIGRAM, QD
     Route: 042

REACTIONS (31)
  - General physical health deterioration [Unknown]
  - Movement disorder [Unknown]
  - Drug dependence [Unknown]
  - Mental disorder [Unknown]
  - Vein disorder [Unknown]
  - Injection site induration [Unknown]
  - Fatigue [Unknown]
  - Cellulitis [Unknown]
  - Behaviour disorder [Unknown]
  - Toxicity to various agents [Unknown]
  - Self-medication [Unknown]
  - Tonic clonic movements [Recovered/Resolved]
  - Depressed mood [Unknown]
  - Headache [Unknown]
  - Product administration error [Unknown]
  - Restlessness [Unknown]
  - Pain [Unknown]
  - Helplessness [Unknown]
  - Intentional product misuse [Unknown]
  - Unresponsive to stimuli [Recovered/Resolved]
  - Drug withdrawal syndrome [Unknown]
  - Disturbance in social behaviour [Unknown]
  - Phlebosclerosis [Unknown]
  - Skin ulcer [Unknown]
  - Overdose [Unknown]
  - Impaired work ability [Unknown]
  - Confusional state [Recovered/Resolved]
  - Injection site ulcer [Unknown]
  - Insomnia [Unknown]
  - Irritability [Unknown]
  - Bruxism [Recovered/Resolved]
